FAERS Safety Report 25844390 (Version 1)
Quarter: 2025Q3

REPORT INFORMATION
  Report Type: Report from Study
  Country: US (occurrence: US)
  Receive Date: 20250925
  Receipt Date: 20250925
  Transmission Date: 20251020
  Serious: Yes (Death, Other)
  Sender: TAKEDA
  Company Number: US-TAKEDA-2025TUS026372

PATIENT
  Age: 45 Year
  Sex: Female

DRUGS (5)
  1. BRIGATINIB [Suspect]
     Active Substance: BRIGATINIB
     Indication: Lung neoplasm malignant
     Dosage: 180 MILLIGRAM, QD
     Dates: start: 20221024
  2. BRIGATINIB [Suspect]
     Active Substance: BRIGATINIB
     Dosage: 180 MILLIGRAM, QD
  3. BRIGATINIB [Suspect]
     Active Substance: BRIGATINIB
     Dosage: 180 MILLIGRAM, QD
  4. DEXAMETHASONE [Suspect]
     Active Substance: DEXAMETHASONE
     Indication: Lung neoplasm malignant
  5. OLANZAPINE [Suspect]
     Active Substance: OLANZAPINE
     Indication: Lung neoplasm malignant
     Dosage: 2.5 MILLIGRAM, QD

REACTIONS (2)
  - Death [Fatal]
  - Poor quality sleep [Unknown]

NARRATIVE: CASE EVENT DATE: 20250904
